FAERS Safety Report 21503200 (Version 2)
Quarter: 2023Q1

REPORT INFORMATION
  Report Type: Spontaneous
  Country: CN (occurrence: CN)
  Receive Date: 20221025
  Receipt Date: 20230227
  Transmission Date: 20230418
  Serious: Yes (Hospitalization, Other)
  Sender: FDA-Public Use
  Company Number: CN-JUBILANT PHARMA LTD-2022CN000517

PATIENT
  Age: 52 Year
  Sex: Female

DRUGS (1)
  1. SODIUM IODIDE I-131 [Suspect]
     Active Substance: SODIUM IODIDE I-131
     Indication: Hyperthyroidism
     Dosage: 7 MCI, SINGLE DOSE

REACTIONS (4)
  - Pancreatitis acute [Recovering/Resolving]
  - Nausea [Recovering/Resolving]
  - Abdominal pain [Recovering/Resolving]
  - Pyrexia [Recovering/Resolving]
